FAERS Safety Report 16338299 (Version 1)
Quarter: 2019Q2

REPORT INFORMATION
  Report Type: Spontaneous
  Country: NL (occurrence: NL)
  Receive Date: 20190521
  Receipt Date: 20190521
  Transmission Date: 20190711
  Serious: Yes (Other)
  Sender: FDA-Public Use
  Company Number: NL-JNJFOC-20190524286

PATIENT
  Age: 82 Year
  Sex: Male

DRUGS (1)
  1. TRAMAL [Suspect]
     Active Substance: TRAMADOL
     Indication: ARTHRALGIA
     Route: 048

REACTIONS (6)
  - Fall [Recovered/Resolved]
  - Hyperhidrosis [Unknown]
  - Contusion [Unknown]
  - Circulatory collapse [Recovered/Resolved]
  - Dizziness [Unknown]
  - Nausea [Unknown]
